FAERS Safety Report 24845343 (Version 1)
Quarter: 2025Q1

REPORT INFORMATION
  Report Type: Spontaneous
  Country: US (occurrence: US)
  Receive Date: 20250115
  Receipt Date: 20250115
  Transmission Date: 20250408
  Serious: No
  Sender: MERCK
  Company Number: US-009507513-2501USA003505

PATIENT
  Sex: Male

DRUGS (3)
  1. VERQUVO [Suspect]
     Active Substance: VERICIGUAT
     Dosage: 10MG/DAY
     Route: 048
  2. VERQUVO [Suspect]
     Active Substance: VERICIGUAT
     Dosage: 20 MG/DAY
     Route: 048
     Dates: start: 20250108, end: 20250112
  3. POTASSIUM [Suspect]
     Active Substance: POTASSIUM

REACTIONS (3)
  - Accidental overdose [Unknown]
  - Product appearance confusion [Unknown]
  - No adverse event [Unknown]

NARRATIVE: CASE EVENT DATE: 20250108
